FAERS Safety Report 6431689-3 (Version None)
Quarter: 2009Q4

REPORT INFORMATION
  Report Type: 
  Country: None (occurrence: None)
  Receive Date: 20091103
  Receipt Date: 20091019
  Transmission Date: 20100525
  Serious: Yes (Hospitalization)
  Sender: FDA-Public Use
  Company Number: OMPQ-NO-0803S-0173

PATIENT
  Age: 49 Year
  Sex: Female
  Weight: 60 kg

DRUGS (2)
  1. OMNIPAQUE 140 [Suspect]
     Indication: PYELONEPHRITIS CHRONIC
     Dosage: SINGLE DOSE
     Dates: start: 20070423, end: 20070423
  2. BISACODYL (TOILAX) [Suspect]
     Dates: start: 20070401

REACTIONS (21)
  - ACTIVITIES OF DAILY LIVING IMPAIRED [None]
  - APHASIA [None]
  - ASTHENIA [None]
  - DEPRESSION [None]
  - DIPLOPIA [None]
  - DRUG INTERACTION [None]
  - DRUG TOXICITY [None]
  - DRY EYE [None]
  - DYSAESTHESIA [None]
  - DYSGEUSIA [None]
  - DYSPNOEA [None]
  - EAR PAIN [None]
  - FATIGUE [None]
  - HYPERSOMNIA [None]
  - MEMORY IMPAIRMENT [None]
  - MUSCLE FATIGUE [None]
  - PALPITATIONS [None]
  - PYELONEPHRITIS ACUTE [None]
  - SKIN EXFOLIATION [None]
  - TINNITUS [None]
  - VITAMIN D DEFICIENCY [None]
